FAERS Safety Report 18597847 (Version 2)
Quarter: 2020Q4

REPORT INFORMATION
  Report Type: Report from Study
  Country: MX (occurrence: MX)
  Receive Date: 20201209
  Receipt Date: 20201217
  Transmission Date: 20210114
  Serious: Yes (Death)
  Sender: FDA-Public Use
  Company Number: MX-EXELIXIS-XL18420035787

PATIENT
  Age: 77 Year
  Sex: Male
  Weight: 57.5 kg

DRUGS (10)
  1. XL184 [Suspect]
     Active Substance: CABOZANTINIB
     Indication: HEPATOCELLULAR CARCINOMA
     Dosage: 60 MG, QD
     Route: 048
     Dates: start: 20200610
  2. XL184 [Suspect]
     Active Substance: CABOZANTINIB
     Dosage: 20 MG, QD
     Route: 048
     Dates: end: 20200811
  3. OMEPRAZOLE. [Concomitant]
     Active Substance: OMEPRAZOLE
  4. ATORVASTATIN [Concomitant]
     Active Substance: ATORVASTATIN
  5. LEVOTHYROXINE. [Concomitant]
     Active Substance: LEVOTHYROXINE
  6. RIVAROXABAN [Concomitant]
     Active Substance: RIVAROXABAN
  7. METOPROLOL. [Concomitant]
     Active Substance: METOPROLOL
  8. AMIODARONE [Concomitant]
     Active Substance: AMIODARONE
  9. DIPHENIDOL [Concomitant]
     Active Substance: DIPHENIDOL
  10. BUTYLSCOPOLAMINE BROMIDE [Concomitant]
     Active Substance: BUTYLSCOPOLAMINE BROMIDE

REACTIONS (1)
  - Appendicitis [Fatal]

NARRATIVE: CASE EVENT DATE: 20201205
